FAERS Safety Report 15107050 (Version 2)
Quarter: 2018Q3

REPORT INFORMATION
  Report Type: Spontaneous
  Country: US (occurrence: US)
  Receive Date: 20180704
  Receipt Date: 20180706
  Transmission Date: 20181010
  Serious: No
  Sender: FDA-Public Use
  Company Number: US-PFIZER INC-2018268117

PATIENT
  Age: 10 Year
  Sex: Female
  Weight: 53.52 kg

DRUGS (3)
  1. ONFI [Concomitant]
     Active Substance: CLOBAZAM
     Indication: PETIT MAL EPILEPSY
     Dosage: 15 ML, 2X/DAY
     Route: 048
  2. CELONTIN [Suspect]
     Active Substance: METHSUXIMIDE
     Indication: PETIT MAL EPILEPSY
     Dosage: 300 MG, 2X/DAY
     Route: 048
     Dates: start: 20180702
  3. LAMICTAL [Concomitant]
     Active Substance: LAMOTRIGINE
     Indication: PETIT MAL EPILEPSY
     Dosage: 75 MG, 2X/DAY [75 MG IN MORNING AND 75MG AT NIGHT]
     Route: 048

REACTIONS (3)
  - Intentional product misuse [Unknown]
  - Product size issue [Unknown]
  - Dysphagia [Unknown]

NARRATIVE: CASE EVENT DATE: 20180702
